FAERS Safety Report 5982164-1 (Version None)
Quarter: 2008Q4

REPORT INFORMATION
  Report Type: 
  Country: None (occurrence: None)
  Receive Date: 20081208
  Receipt Date: 20081128
  Transmission Date: 20090506
  Serious: Yes (Disabling)
  Sender: FDA-Public Use
  Company Number: GB-RANBAXY-2008RR-19658

PATIENT
  Age: 50 Year
  Sex: Male
  Weight: 70 kg

DRUGS (7)
  1. SIMVASTATIN [Suspect]
     Indication: DIABETES MELLITUS
     Dosage: 20 MG, UNK
     Route: 048
     Dates: start: 20080101, end: 20080101
  2. SIMVASTATIN [Suspect]
     Indication: HYPERLIPIDAEMIA
     Dosage: 40 MG, UNK
     Route: 048
     Dates: end: 20080101
  3. ASPIRIN [Concomitant]
     Dosage: 75 MG, UNK
     Dates: start: 20040101
  4. GLIMEPIRIDE [Concomitant]
     Dosage: 6 MG, UNK
     Dates: start: 20040101
  5. LEVEMIR [Concomitant]
     Dosage: UNK
     Route: 058
     Dates: start: 20050101
  6. METFORMIN HCL [Concomitant]
     Dosage: 850 MG, TID
     Dates: start: 20040101
  7. NOVORAPID [Concomitant]
     Dosage: UNK
     Route: 058
     Dates: start: 20050101

REACTIONS (1)
  - PANIC ATTACK [None]
